FAERS Safety Report 18057560 (Version 1)
Quarter: 2020Q3

REPORT INFORMATION
  Report Type: Report from Study
  Country: None (occurrence: CA)
  Receive Date: 20200723
  Receipt Date: 20200723
  Transmission Date: 20201103
  Serious: Yes (Other)
  Sender: FDA-Public Use
  Company Number: CA-ABBVIE-20K-028-3490954-00

PATIENT
  Sex: Male

DRUGS (2)
  1. HUMIRA [Suspect]
     Active Substance: ADALIMUMAB
     Route: 058
  2. HUMIRA [Suspect]
     Active Substance: ADALIMUMAB
     Indication: CROHN^S DISEASE
     Route: 058
     Dates: start: 20130805, end: 20180611

REACTIONS (10)
  - Intestinal obstruction [Unknown]
  - Faecal calprotectin increased [Not Recovered/Not Resolved]
  - Rectal stenosis [Unknown]
  - Epigastric discomfort [Unknown]
  - Gastrointestinal scarring [Not Recovered/Not Resolved]
  - Colitis [Not Recovered/Not Resolved]
  - Back pain [Unknown]
  - Therapeutic product effect incomplete [Unknown]
  - Large intestinal stenosis [Not Recovered/Not Resolved]
  - Anal stenosis [Unknown]
